FAERS Safety Report 21371341 (Version 1)
Quarter: 2022Q3

REPORT INFORMATION
  Report Type: Spontaneous
  Country: None (occurrence: US)
  Receive Date: 20220923
  Receipt Date: 20220923
  Transmission Date: 20221027
  Serious: Yes (Other)
  Sender: FDA-Public Use
  Company Number: US-Performance Health, LLC-2133113

PATIENT
  Age: 53 Year
  Sex: Female

DRUGS (1)
  1. BIOFREEZE [Suspect]
     Active Substance: MENTHOL
     Route: 061
     Dates: start: 20220809

REACTIONS (1)
  - Skin depigmentation [Unknown]

NARRATIVE: CASE EVENT DATE: 20220809
